FAERS Safety Report 10067784 (Version 1)
Quarter: 2014Q2

REPORT INFORMATION
  Report Type: Spontaneous
  Country: US (occurrence: US)
  Receive Date: 20140409
  Receipt Date: 20140409
  Transmission Date: 20141212
  Serious: Yes (Hospitalization)
  Sender: FDA-Public Use
  Company Number: US-SA-2014SA041442

PATIENT
  Age: 69 Year
  Sex: Female

DRUGS (2)
  1. ALLEGRA [Suspect]
     Indication: MULTIPLE ALLERGIES
     Dosage: FROM: 10 YEARS AGO
     Route: 048
  2. ANTIHISTAMINES [Concomitant]

REACTIONS (7)
  - Arthropathy [Unknown]
  - Musculoskeletal pain [Unknown]
  - Bronchitis [Unknown]
  - Pneumonia [Unknown]
  - Fear of death [Unknown]
  - Hypersensitivity [Unknown]
  - Pruritus [Unknown]
